FAERS Safety Report 16485805 (Version 1)
Quarter: 2019Q2

REPORT INFORMATION
  Report Type: Report from Study
  Country: US (occurrence: US)
  Receive Date: 20190627
  Receipt Date: 20190627
  Transmission Date: 20190711
  Serious: Yes (Death, Hospitalization)
  Sender: FDA-Public Use
  Company Number: US-BAUSCH-BL-2019-004319

PATIENT
  Age: 79 Year
  Sex: Male

DRUGS (3)
  1. XIFAXAN [Suspect]
     Active Substance: RIFAXIMIN
     Dosage: DOSE REDUCED
     Route: 048
     Dates: start: 201902, end: 201902
  2. XIFAXAN [Suspect]
     Active Substance: RIFAXIMIN
     Route: 048
     Dates: start: 201902
  3. XIFAXAN [Suspect]
     Active Substance: RIFAXIMIN
     Indication: HEPATIC CIRRHOSIS
     Route: 048
     Dates: start: 2016

REACTIONS (7)
  - Ammonia increased [Not Recovered/Not Resolved]
  - Intentional product use issue [Unknown]
  - Dizziness [Recovered/Resolved]
  - Headache [Recovered/Resolved]
  - Confusional state [Not Recovered/Not Resolved]
  - Product supply issue [Unknown]
  - Death [Fatal]

NARRATIVE: CASE EVENT DATE: 201902
